FAERS Safety Report 6539739-0 (Version None)
Quarter: 2010Q1

REPORT INFORMATION
  Report Type: 
  Country: None (occurrence: None)
  Receive Date: 20100115
  Receipt Date: 20100111
  Transmission Date: 20100710
  Serious: Yes (Other)
  Sender: FDA-Public Use
  Company Number: GB-MERCK-1001GBR00035

PATIENT
  Sex: Male

DRUGS (1)
  1. PROSCAR [Suspect]
     Route: 048

REACTIONS (3)
  - FEMINISATION ACQUIRED [None]
  - GYNAECOMASTIA [None]
  - WEIGHT INCREASED [None]
